FAERS Safety Report 7864171-7 (Version None)
Quarter: 2011Q4

REPORT INFORMATION
  Report Type: 
  Country: None (occurrence: None)
  Receive Date: 20111028
  Receipt Date: 20111024
  Transmission Date: 20120403
  Serious: Yes (Other)
  Sender: FDA-Public Use
  Company Number: US-PFIZER INC-2011257684

PATIENT
  Sex: Male
  Weight: 98.866 kg

DRUGS (18)
  1. SILODOSIN [Concomitant]
     Indication: MICTURITION DISORDER
     Dosage: 8 MG, DAILY
  2. TOVIAZ [Suspect]
     Indication: BLADDER DISORDER
     Dosage: 8 MG, DAILY
     Dates: start: 20110301, end: 20110101
  3. SIMVASTATIN [Concomitant]
     Dosage: 20 MG, DAILY
  4. FISH OIL [Concomitant]
     Indication: CARDIAC DISORDER
     Dosage: UNK, DAILY
  5. OSTEO BI-FLEX [Concomitant]
     Indication: ARTHROPATHY
     Dosage: UNK, DAILY
  6. AMLODIPINE [Concomitant]
     Indication: HYPERTENSION
     Dosage: 10 MG, DAILY
  7. DOXEPIN [Concomitant]
     Dosage: 50 MG, DAILY
  8. LANSOPRAZOLE [Concomitant]
     Dosage: UNK, DAILY
  9. METOPROLOL [Concomitant]
     Indication: HYPERTENSION
     Dosage: 100 MG, DAILY
  10. STELAZINE [Concomitant]
     Indication: DEPRESSION
     Dosage: 1 MG, DAILY
  11. FUROSEMIDE [Concomitant]
     Indication: HYPERTENSION
     Dosage: 40 MG, DAILY
  12. TOVIAZ [Suspect]
     Dosage: 4 MG, DAILY
     Dates: start: 20110101, end: 20110101
  13. KLOR-CON [Concomitant]
     Dosage: 20 MG, DAILY
  14. ACETYLSALICYLIC ACID [Concomitant]
     Dosage: 81 MG,DAILY
  15. ALEVE [Concomitant]
     Indication: ARTHRITIS
     Dosage: UNK, DAILY
  16. TOVIAZ [Suspect]
     Dosage: UNK
     Dates: end: 20111024
  17. FUROSEMIDE [Concomitant]
     Indication: CARDIAC FAILURE
  18. LUTEIN [Concomitant]
     Indication: MACULAR DEGENERATION
     Dosage: UNK, DAILY

REACTIONS (3)
  - CONSTIPATION [None]
  - GOUT [None]
  - URINARY INCONTINENCE [None]
